FAERS Safety Report 14250903 (Version 1)
Quarter: 2017Q4

REPORT INFORMATION
  Report Type: Spontaneous
  Country: US (occurrence: US)
  Receive Date: 20171205
  Receipt Date: 20171205
  Transmission Date: 20180321
  Serious: Yes (Death)
  Sender: FDA-Public Use
  Company Number: US-CIPLA LTD.-2017US21878

PATIENT

DRUGS (4)
  1. ACETAMINOPHEN. [Suspect]
     Active Substance: ACETAMINOPHEN
     Dosage: UNK
     Route: 048
  2. METHADONE [Suspect]
     Active Substance: METHADONE HYDROCHLORIDE
     Dosage: UNK
     Route: 048
  3. AMPHETAMINE [Suspect]
     Active Substance: AMPHETAMINE
     Dosage: UNK
     Route: 048
  4. ZOLPIDEM TARTARATE [Suspect]
     Active Substance: ZOLPIDEM TARTRATE
     Dosage: UNK
     Route: 048

REACTIONS (1)
  - Toxicity to various agents [Fatal]
